FAERS Safety Report 9239055 (Version 1)
Quarter: 2013Q2

REPORT INFORMATION
  Report Type: Spontaneous
  Country: GB (occurrence: GB)
  Receive Date: 20130418
  Receipt Date: 20130418
  Transmission Date: 20140414
  Serious: Yes (Other)
  Sender: FDA-Public Use
  Company Number: PHHY2013GB035700

PATIENT
  Sex: Female

DRUGS (3)
  1. DOCETAXEL [Suspect]
     Dosage: 100 MG/M2
  2. PERTUZUMAB [Suspect]
  3. HERCEPTIN [Suspect]

REACTIONS (3)
  - Oral pain [Unknown]
  - Dry mouth [Unknown]
  - Diarrhoea [Unknown]
